FAERS Safety Report 4544625-1 (Version None)
Quarter: 2004Q4

REPORT INFORMATION
  Report Type: 
  Country: None (occurrence: None)
  Receive Date: 20041230
  Receipt Date: 20041221
  Transmission Date: 20050328
  Serious: Yes (Hospitalization)
  Sender: FDA-Public Use
  Company Number: USA-2004-0018096

PATIENT
  Age: 65 Year
  Sex: Male

DRUGS (2)
  1. CEFIDTOREN PIVOXIL(SIMILAR TO NDA 21-222)(CEFDITOREN PIVOXIL) OTHER [Suspect]
     Indication: INFECTION PROPHYLAXIS
     Dosage: 100 MG, SINGLE , ORAL
     Route: 048
     Dates: start: 20041108, end: 20041108
  2. PEON(ZALTOPROFEN) [Concomitant]

REACTIONS (3)
  - ANAPHYLACTIC SHOCK [None]
  - LOSS OF CONSCIOUSNESS [None]
  - VENTRICULAR EXTRASYSTOLES [None]
